FAERS Safety Report 24304636 (Version 5)
Quarter: 2025Q4

REPORT INFORMATION
  Report Type: Spontaneous
  Country: JP (occurrence: JP)
  Receive Date: 20240910
  Receipt Date: 20251121
  Transmission Date: 20260117
  Serious: Yes (Other)
  Sender: NEUROCRINE BIOSCIENCES
  Company Number: JP-NEUROCRINE BIOSCIENCES INC.-2024NBI03643

PATIENT
  Sex: Female

DRUGS (2)
  1. VALBENAZINE [Suspect]
     Active Substance: VALBENAZINE
     Indication: Product used for unknown indication
     Dosage: 40 MILLIGRAM
     Route: 048
  2. PAXIL [Concomitant]
     Active Substance: PAROXETINE HYDROCHLORIDE
     Dosage: UNKNOWN
     Route: 048

REACTIONS (14)
  - Tardive dyskinesia [Unknown]
  - Dyskinesia [Unknown]
  - Dyskinesia [Unknown]
  - Therapeutic product effect incomplete [Unknown]
  - Faeces hard [Unknown]
  - Micturition disorder [Unknown]
  - Urinary incontinence [Unknown]
  - Administration site discomfort [Unknown]
  - Discouragement [Unknown]
  - Diarrhoea [Unknown]
  - Dysuria [Unknown]
  - Therapeutic response unexpected [Unknown]
  - Constipation [Unknown]
  - Somnolence [Unknown]
